FAERS Safety Report 6911935-X (Version None)
Quarter: 2010Q3

REPORT INFORMATION
  Report Type: 
  Country: None (occurrence: None)
  Receive Date: 20100806
  Receipt Date: 20071019
  Transmission Date: 20110219
  Serious: No
  Sender: FDA-Public Use
  Company Number: US-PFIZER INC-2007076758

PATIENT
  Sex: Female
  Weight: 64.1 kg

DRUGS (3)
  1. DETROL LA [Suspect]
     Indication: HYPERTONIC BLADDER
     Dates: start: 20040901
  2. PROTONIX [Concomitant]
  3. MELOXICAM [Concomitant]

REACTIONS (2)
  - DRY MOUTH [None]
  - SKIN EXFOLIATION [None]
